FAERS Safety Report 6242079-0 (Version None)
Quarter: 2009Q2

REPORT INFORMATION
  Report Type: 
  Country: None (occurrence: None)
  Receive Date: 20090622
  Receipt Date: 20090612
  Transmission Date: 20091009
  Serious: Yes (Hospitalization)
  Sender: FDA-Public Use
  Company Number: 2009006933

PATIENT
  Age: 60 Year
  Sex: Male

DRUGS (1)
  1. TRISENOX [Suspect]
     Indication: ACUTE MYELOID LEUKAEMIA
     Dosage: 15 MG, INTRAVENOUS
     Route: 042
     Dates: start: 20090501, end: 20090611

REACTIONS (4)
  - CONFUSIONAL STATE [None]
  - DRY MOUTH [None]
  - GENERAL PHYSICAL CONDITION ABNORMAL [None]
  - PHARYNGEAL DISORDER [None]
